FAERS Safety Report 9117679 (Version 3)
Quarter: 2013Q3

REPORT INFORMATION
  Report Type: Spontaneous
  Country: US (occurrence: US)
  Receive Date: 20130128
  Receipt Date: 20130704
  Transmission Date: 20140515
  Serious: Yes (Other)
  Sender: FDA-Public Use
  Company Number: US-009507513-1301USA012267

PATIENT
  Sex: Female

DRUGS (3)
  1. PEG-INTRON [Suspect]
     Indication: CHRONIC HEPATITIS C
     Dosage: REDIPEN
     Dates: start: 20130106
  2. RIBAVIRIN [Suspect]
     Indication: CHRONIC HEPATITIS C
     Dosage: UNK
     Dates: start: 20130107
  3. VICTRELIS [Suspect]
     Indication: CHRONIC HEPATITIS C
     Dosage: UNK
     Dates: start: 20130204

REACTIONS (21)
  - Hypothyroidism [Unknown]
  - Fracture [Unknown]
  - Thyroid disorder [Unknown]
  - Hypertension [Unknown]
  - Pollakiuria [Unknown]
  - Oropharyngeal pain [Unknown]
  - Influenza like illness [Unknown]
  - Diarrhoea [Unknown]
  - Dehydration [Unknown]
  - Fatigue [Unknown]
  - Insomnia [Unknown]
  - Thirst [Unknown]
  - Pollakiuria [Unknown]
  - Malaise [Unknown]
  - Disturbance in attention [Unknown]
  - Dizziness [Unknown]
  - Oropharyngeal pain [Unknown]
  - Vomiting [Unknown]
  - Dysgeusia [Unknown]
  - Alopecia [Unknown]
  - Fall [Unknown]
